FAERS Safety Report 14687472 (Version 1)
Quarter: 2018Q1

REPORT INFORMATION
  Report Type: Spontaneous
  Country: US (occurrence: US)
  Receive Date: 20180328
  Receipt Date: 20180328
  Transmission Date: 20180509
  Serious: No
  Sender: FDA-Public Use
  Company Number: US-SHIRE-US201810415

PATIENT
  Age: 50 Year
  Sex: Female
  Weight: 63.49 kg

DRUGS (1)
  1. XIIDRA [Suspect]
     Active Substance: LIFITEGRAST
     Indication: DRY EYE
     Dosage: 1 GTT, 2X/DAY:BID
     Route: 047
     Dates: start: 20180227

REACTIONS (4)
  - Dysgeusia [Not Recovered/Not Resolved]
  - Instillation site pruritus [Not Recovered/Not Resolved]
  - Instillation site reaction [Unknown]
  - Instillation site burn [Not Recovered/Not Resolved]

NARRATIVE: CASE EVENT DATE: 20180227
